FAERS Safety Report 19567208 (Version 2)
Quarter: 2021Q3

REPORT INFORMATION
  Report Type: Spontaneous
  Country: FR (occurrence: FR)
  Receive Date: 20210714
  Receipt Date: 20210716
  Transmission Date: 20211014
  Serious: Yes (Hospitalization)
  Sender: FDA-Public Use
  Company Number: FR-PFIZER INC-2021817277

PATIENT
  Age: 26 Year
  Sex: Female
  Weight: 74 kg

DRUGS (7)
  1. THERALENE [Suspect]
     Active Substance: TRIMEPRAZINE
     Dosage: 100 MILLIGRAM
     Route: 048
     Dates: start: 20210424, end: 20210424
  2. SERESTA [Suspect]
     Active Substance: OXAZEPAM
     Dosage: 10 MG EVERY 8 HOURS
     Route: 048
     Dates: start: 20210421, end: 20210430
  3. LANSOPRAZOLE. [Suspect]
     Active Substance: LANSOPRAZOLE
     Dosage: 15 MILLIGRAM, Q12H
     Route: 048
     Dates: start: 20210421, end: 20210430
  4. PRAZEPAM [Suspect]
     Active Substance: PRAZEPAM
     Dosage: 50 MILLIGRAM
     Route: 048
     Dates: start: 20210424, end: 20210424
  5. ACUPAN [Suspect]
     Active Substance: NEFOPAM HYDROCHLORIDE
     Indication: PAIN
     Dosage: 120 MILLIGRAM, QD
     Route: 041
     Dates: start: 20210421
  6. LYRICA [Suspect]
     Active Substance: PREGABALIN
     Dosage: 800 MILLIGRAM
     Route: 048
     Dates: start: 20210424, end: 20210424
  7. DULOXETINE. [Suspect]
     Active Substance: DULOXETINE
     Dosage: 90 MILLIGRAM, QD
     Route: 048
     Dates: start: 202012, end: 20210430

REACTIONS (3)
  - Somnolence [Recovered/Resolved]
  - Suicide attempt [Recovered/Resolved]
  - Hypotension [Recovered/Resolved]

NARRATIVE: CASE EVENT DATE: 20210424
